FAERS Safety Report 25447897 (Version 1)
Quarter: 2025Q2

REPORT INFORMATION
  Report Type: Spontaneous
  Country: GB (occurrence: GB)
  Receive Date: 20250617
  Receipt Date: 20250617
  Transmission Date: 20250717
  Serious: Yes (Other)
  Sender: SANDOZ
  Company Number: GB-MHRA-TPP35344588C10000184YC1749806331635

PATIENT
  Age: 35 Year
  Sex: Female
  Weight: 61 kg

DRUGS (5)
  1. NYSTATIN [Suspect]
     Active Substance: NYSTATIN
     Indication: Ill-defined disorder
     Route: 065
     Dates: start: 20250609
  2. Dalacin [Concomitant]
     Indication: Ill-defined disorder
     Route: 065
     Dates: start: 20230523
  3. DOXYCYCLINE [Concomitant]
     Active Substance: DOXYCYCLINE
     Indication: Ill-defined disorder
     Route: 065
     Dates: start: 20250609
  4. FLUCONAZOLE [Concomitant]
     Active Substance: FLUCONAZOLE
     Indication: Ill-defined disorder
     Route: 065
     Dates: start: 20231115
  5. TRAMADOL [Concomitant]
     Active Substance: TRAMADOL
     Indication: Ill-defined disorder
     Route: 065
     Dates: start: 20190108, end: 20250609

REACTIONS (1)
  - Gingival swelling [Recovered/Resolved]
